FAERS Safety Report 20104521 (Version 1)
Quarter: 2021Q4

REPORT INFORMATION
  Report Type: Spontaneous
  Country: US (occurrence: US)
  Receive Date: 20211123
  Receipt Date: 20211123
  Transmission Date: 20220303
  Serious: No
  Sender: FDA-Public Use
  Company Number: US-BoehringerIngelheim-2021-BI-140060

PATIENT
  Sex: Female

DRUGS (1)
  1. SYNJARDY XR [Suspect]
     Active Substance: EMPAGLIFLOZIN\METFORMIN HYDROCHLORIDE
     Indication: Product used for unknown indication
     Dosage: 12.5MG/1000MG
     Route: 065
     Dates: start: 202110, end: 202111

REACTIONS (1)
  - Feeling abnormal [Unknown]

NARRATIVE: CASE EVENT DATE: 20211001
